FAERS Safety Report 21401753 (Version 1)
Quarter: 2022Q4

REPORT INFORMATION
  Report Type: Spontaneous
  Country: JP (occurrence: JP)
  Receive Date: 20221003
  Receipt Date: 20221003
  Transmission Date: 20230112
  Serious: Yes (Hospitalization)
  Sender: FDA-Public Use
  Company Number: JP-NBI-J202213351BIPI

PATIENT
  Age: 84 Year
  Sex: Female
  Weight: 49 kg

DRUGS (10)
  1. JARDIANCE [Suspect]
     Active Substance: EMPAGLIFLOZIN
     Indication: Cardiac failure congestive
     Route: 048
     Dates: start: 20210708, end: 20220803
  2. JARDIANCE [Suspect]
     Active Substance: EMPAGLIFLOZIN
     Indication: Diabetes mellitus
  3. LINAGLIPTIN [Concomitant]
     Active Substance: LINAGLIPTIN
     Indication: Diabetes mellitus
     Route: 048
     Dates: start: 20210822
  4. XARELTO [Concomitant]
     Active Substance: RIVAROXABAN
     Indication: Thrombosis prophylaxis
     Route: 048
     Dates: start: 20180411
  5. FUROSEMIDE [Concomitant]
     Active Substance: FUROSEMIDE
     Indication: Cardiac failure congestive
     Route: 048
     Dates: start: 20190128
  6. RABEPRAZOLE SODIUM [Concomitant]
     Active Substance: RABEPRAZOLE SODIUM
     Indication: Prophylaxis against gastrointestinal ulcer
     Route: 048
     Dates: start: 20210701
  7. DEPAKENE [Concomitant]
     Active Substance: VALPROIC ACID
     Indication: Autonomic nervous system imbalance
     Route: 048
     Dates: start: 20120517
  8. SODIUM FERROUS CITRATE [Concomitant]
     Active Substance: SODIUM FERROUS CITRATE
     Indication: Iron deficiency anaemia
     Route: 048
     Dates: start: 20220628
  9. SAMSCA [Concomitant]
     Active Substance: TOLVAPTAN
     Indication: Product used for unknown indication
     Route: 048
     Dates: start: 20190127, end: 20220713
  10. ENTRESTO [Concomitant]
     Active Substance: SACUBITRIL\VALSARTAN
     Indication: Product used for unknown indication
     Route: 048
     Dates: start: 20220408, end: 20220713

REACTIONS (4)
  - Urinary tract infection [Recovered/Resolved]
  - Coronavirus test positive [Recovered/Resolved]
  - Urinary tract infection [Recovered/Resolved]
  - Urinary tract infection [Recovered/Resolved]

NARRATIVE: CASE EVENT DATE: 20220614
